FAERS Safety Report 11086370 (Version 1)
Quarter: 2015Q2

REPORT INFORMATION
  Report Type: Spontaneous
  Country: GB (occurrence: GB)
  Receive Date: 20150504
  Receipt Date: 20150504
  Transmission Date: 20150821
  Serious: Yes (Hospitalization)
  Sender: FDA-Public Use
  Company Number: PHHY2015GB050191

PATIENT
  Age: 2 Day
  Sex: Male
  Weight: 2.83 kg

DRUGS (5)
  1. AMOXICILLIN. [Suspect]
     Active Substance: AMOXICILLIN
     Indication: NEONATAL RESPIRATORY DISTRESS SYNDROME
  2. AMOXICILLIN. [Suspect]
     Active Substance: AMOXICILLIN
     Indication: C-REACTIVE PROTEIN INCREASED
  3. CEFOTAXIME [Concomitant]
     Active Substance: CEFOTAXIME\CEFOTAXIME SODIUM
     Indication: PRODUCT USED FOR UNKNOWN INDICATION
     Dosage: 140 MG BID, IV SLOW BOLUS OVER 3-4 MINUTES
     Route: 040
     Dates: start: 20140705, end: 20140709
  4. SODIUM CHLORIDE. [Concomitant]
     Active Substance: SODIUM CHLORIDE
     Indication: CATHETER MANAGEMENT
     Dosage: 0.9 %
     Route: 065
     Dates: start: 20140705, end: 20140709
  5. AMOXICILLIN. [Suspect]
     Active Substance: AMOXICILLIN
     Indication: SEPSIS NEONATAL
     Dosage: 140 MG, BID, IV SLOW BOLUS OVER 3-4 MINUTES
     Route: 040
     Dates: start: 20140705, end: 20140709

REACTIONS (2)
  - Off label use [Recovering/Resolving]
  - Extravasation [Recovering/Resolving]

NARRATIVE: CASE EVENT DATE: 20140707
